FAERS Safety Report 5778862-5 (Version None)
Quarter: 2008Q2

REPORT INFORMATION
  Report Type: 
  Country: None (occurrence: None)
  Receive Date: 20080619
  Receipt Date: 20080609
  Transmission Date: 20081010
  Serious: Yes (Other)
  Sender: FDA-Public Use
  Company Number: US-JNJFOC-20080106138

PATIENT
  Age: 14 Year
  Sex: Male
  Weight: 56.7 kg

DRUGS (2)
  1. RETIN-A MICRO [Suspect]
     Indication: ACNE
     Route: 061
  2. DUAC [Concomitant]

REACTIONS (1)
  - DERMATITIS [None]
